FAERS Safety Report 8230666-X (Version None)
Quarter: 2012Q1

REPORT INFORMATION
  Report Type: 
  Country: None (occurrence: None)
  Receive Date: 20120322
  Receipt Date: 20120322
  Transmission Date: 20120608
  Serious: Yes (Death)
  Sender: FDA-Public Use
  Company Number: None

PATIENT
  Sex: Male
  Weight: 109.7705 kg

DRUGS (3)
  1. VCITRELIS [Concomitant]
  2. PEGASYS [Suspect]
     Indication: COMA HEPATIC
     Dosage: 180MCG QW SQ
     Route: 058
     Dates: start: 20110908, end: 20120101
  3. PEGASYS [Suspect]
     Indication: HEPATITIS C
     Dosage: 180MCG QW SQ
     Route: 058
     Dates: start: 20110908, end: 20120101

REACTIONS (1)
  - HEPATIC FAILURE [None]
